FAERS Safety Report 18511723 (Version 3)
Quarter: 2020Q4

REPORT INFORMATION
  Report Type: Report from Study
  Country: GB (occurrence: GB)
  Receive Date: 20201117
  Receipt Date: 20201124
  Transmission Date: 20210114
  Serious: Yes (Other)
  Sender: FDA-Public Use
  Company Number: NVSC2020GB296615

PATIENT
  Sex: Female

DRUGS (2)
  1. OMNITROPE [Suspect]
     Active Substance: SOMATROPIN
     Indication: GROWTH HORMONE DEFICIENCY
     Dosage: 1.2 MG, QD (FIRST 6 WEEKS, 1.5MG THEREAFTER))
     Route: 058
     Dates: start: 20201028
  2. OMNITROPE [Suspect]
     Active Substance: SOMATROPIN
     Dosage: 1.5 MG, QD
     Route: 058

REACTIONS (7)
  - Anxiety [Unknown]
  - Injection site erythema [Unknown]
  - Condition aggravated [Unknown]
  - Injection site pain [Unknown]
  - Growth hormone deficiency [Unknown]
  - Product storage error [Unknown]
  - Product dose omission issue [Unknown]
